FAERS Safety Report 9293449 (Version 1)
Quarter: 2013Q2

REPORT INFORMATION
  Report Type: Spontaneous
  Country: US (occurrence: US)
  Receive Date: 20130516
  Receipt Date: 20130516
  Transmission Date: 20140414
  Serious: No
  Sender: FDA-Public Use
  Company Number: US-B.I. PHARMACEUTICALS,INC./RIDGEFIELD-2013-BI-13607BP

PATIENT
  Age: 82 Year
  Sex: Male
  Weight: 91 kg

DRUGS (1)
  1. SPIRIVA [Suspect]
     Indication: CHRONIC OBSTRUCTIVE PULMONARY DISEASE
     Dosage: 18 MCG
     Route: 055
     Dates: start: 201301, end: 20130510

REACTIONS (8)
  - Ageusia [Recovered/Resolved]
  - Sinusitis [Recovered/Resolved]
  - Dysuria [Not Recovered/Not Resolved]
  - Dry mouth [Recovered/Resolved]
  - Joint swelling [Recovered/Resolved]
  - Constipation [Recovered/Resolved]
  - Eye pain [Recovered/Resolved]
  - Contusion [Not Recovered/Not Resolved]
